FAERS Safety Report 6983702-2 (Version None)
Quarter: 2010Q3

REPORT INFORMATION
  Report Type: 
  Country: None (occurrence: None)
  Receive Date: 20100914
  Receipt Date: 20051125
  Transmission Date: 20110219
  Serious: Yes (Hospitalization)
  Sender: FDA-Public Use
  Company Number: US-WYE-H07144908

PATIENT
  Age: 60 Year
  Sex: Male

DRUGS (1)
  1. ADVIL LIQUI-GELS [Suspect]
     Indication: MUSCULOSKELETAL PAIN
     Dosage: TOOK 2 ADVIL THE DAY PRIOR TO ADMISSION
     Route: 065
     Dates: start: 20000601, end: 20000601

REACTIONS (4)
  - FATIGUE [None]
  - HAEMATOCRIT DECREASED [None]
  - MALAISE [None]
  - MELAENA [None]
